FAERS Safety Report 6395600-6 (Version None)
Quarter: 2009Q4

REPORT INFORMATION
  Report Type: 
  Country: None (occurrence: None)
  Receive Date: 20091009
  Receipt Date: 20091006
  Transmission Date: 20100525
  Serious: Yes (Other)
  Sender: FDA-Public Use
  Company Number: FR-BRISTOL-MYERS SQUIBB COMPANY-14810642

PATIENT
  Age: 81 Year
  Sex: Female

DRUGS (3)
  1. COAPROVEL TABS [Suspect]
     Dosage: TAKEN IN THE MORNING
     Route: 048
  2. APROVEL TABS 150 MG [Suspect]
     Dosage: TAKEN IN THE EVENING
     Route: 048
  3. HYPERIUM [Concomitant]
     Route: 048

REACTIONS (3)
  - BLOOD PRESSURE SYSTOLIC DECREASED [None]
  - LOSS OF CONSCIOUSNESS [None]
  - MALAISE [None]
